FAERS Safety Report 14136902 (Version 1)
Quarter: 2017Q4

REPORT INFORMATION
  Report Type: Other
  Country: IT (occurrence: IT)
  Receive Date: 20171027
  Receipt Date: 20171027
  Transmission Date: 20180321
  Serious: Yes (Hospitalization)
  Sender: FDA-Public Use
  Company Number: IT-HIKMA PHARMACEUTICALS CO. LTD-2017IT014399

PATIENT

DRUGS (7)
  1. REMSIMA [Suspect]
     Active Substance: INFLIXIMAB
     Dosage: 300 MG, CYCLIC
     Route: 042
     Dates: start: 20170901, end: 20170901
  2. TAZOCIN [Concomitant]
     Active Substance: PIPERACILLIN SODIUM\TAZOBACTAM SODIUM
     Dosage: 4 G+ 0.500 G POWDER FOR SOLUTION FOR INFUSION, 1 VIAL POWDER 3 UNITS
  3. REMSIMA [Suspect]
     Active Substance: INFLIXIMAB
     Indication: ANKYLOSING SPONDYLITIS
     Dosage: 300 MG, CYCLIC
     Route: 042
     Dates: start: 20170101, end: 20170101
  4. PANTORC [Concomitant]
     Active Substance: PANTOPRAZOLE SODIUM
     Indication: PROPHYLAXIS
     Dosage: 40 MG IN BLISTER AL/AL
  5. NOVALGINA [Concomitant]
     Active Substance: METAMIZOLE SODIUM
     Dosage: 20 ML VIAL
  6. APIXABAN [Concomitant]
     Active Substance: APIXABAN
  7. LEVOXACIN [Concomitant]
     Active Substance: LEVOFLOXACIN

REACTIONS (4)
  - Polyserositis [Unknown]
  - Systemic lupus erythematosus [Unknown]
  - Skin lesion [Unknown]
  - Arthralgia [Unknown]

NARRATIVE: CASE EVENT DATE: 20171006
